FAERS Safety Report 15862894 (Version 3)
Quarter: 2019Q2

REPORT INFORMATION
  Report Type: Spontaneous
  Country: FR (occurrence: FR)
  Receive Date: 20190124
  Receipt Date: 20190409
  Transmission Date: 20190711
  Serious: Yes (Life-Threatening)
  Sender: FDA-Public Use
  Company Number: FR-AMREGENT-20182460

PATIENT
  Age: 32 Year
  Sex: Female
  Weight: 48 kg

DRUGS (2)
  1. FERINJECT [Suspect]
     Active Substance: FERRIC CARBOXYMALTOSE
     Dosage: 500 MG, 1 IN 1 TOTAL
     Route: 041
     Dates: start: 20181207, end: 20181207
  2. HUMIRA [Concomitant]
     Active Substance: ADALIMUMAB
     Dosage: 40 MG,1 IN 1 WK
     Route: 065

REACTIONS (4)
  - Hypersensitivity [Unknown]
  - Tinnitus [Unknown]
  - Back pain [Unknown]
  - Renal pain [Unknown]

NARRATIVE: CASE EVENT DATE: 20181207
